FAERS Safety Report 20375871 (Version 3)
Quarter: 2022Q1

REPORT INFORMATION
  Report Type: Spontaneous
  Country: US (occurrence: US)
  Receive Date: 20220125
  Receipt Date: 20220318
  Transmission Date: 20220423
  Serious: Yes (Death, Hospitalization, Other)
  Sender: FDA-Public Use
  Company Number: US-BIOMARINAP-US-2022-141017

PATIENT
  Age: 43 Year
  Sex: Female
  Weight: 31.4 kg

DRUGS (1)
  1. VIMIZIM [Suspect]
     Active Substance: ELOSULFASE ALFA
     Indication: Mucopolysaccharidosis IV
     Dosage: 65 MILLIGRAM, QW
     Route: 042
     Dates: start: 20151207

REACTIONS (3)
  - Abdominal mass [Fatal]
  - Abdominal pain [Not Recovered/Not Resolved]
  - Anaphylactic reaction [Not Recovered/Not Resolved]

NARRATIVE: CASE EVENT DATE: 20220120
